FAERS Safety Report 4863645-0 (Version None)
Quarter: 2005Q4

REPORT INFORMATION
  Report Type: 
  Country: None (occurrence: None)
  Receive Date: 20051222
  Receipt Date: 20050915
  Transmission Date: 20060501
  Serious: No
  Sender: FDA-Public Use
  Company Number: US-GLAXOSMITHKLINE-A0574435A

PATIENT
  Age: 70 Year
  Sex: Female

DRUGS (3)
  1. FLOVENT [Suspect]
     Dosage: 220MCG TWICE PER DAY
     Route: 055
     Dates: start: 20050825
  2. AMITRIPTYLINE [Concomitant]
  3. ULTRAM [Concomitant]

REACTIONS (2)
  - DRUG INEFFECTIVE [None]
  - PHARMACEUTICAL PRODUCT COMPLAINT [None]
